FAERS Safety Report 10511093 (Version 2)
Quarter: 2014Q4

REPORT INFORMATION
  Report Type: Report from Study
  Country: DE (occurrence: DE)
  Receive Date: 20141010
  Receipt Date: 20141021
  Transmission Date: 20150528
  Serious: Yes (Hospitalization)
  Sender: FDA-Public Use
  Company Number: DE-SA-2014SA134110

PATIENT
  Age: 65 Year
  Sex: Male

DRUGS (26)
  1. EMEND [Concomitant]
     Active Substance: APREPITANT
     Indication: PROPHYLAXIS OF NAUSEA AND VOMITING
     Dosage: 2) PROPHYLAXIS OF NAUSEA DAY 2-3 OF CHEMOTHERAPY(80 MG)
     Route: 048
     Dates: start: 20140528
  2. ONDANSETRON [Concomitant]
     Active Substance: ONDANSETRON
     Indication: PREMEDICATION
     Dosage: ?PRIOR TO CHEMOTHERAPY ON DAY 1 EVERY CYCLE (8 MG)
     Route: 042
     Dates: start: 20140528
  3. FOLINIC ACID [Suspect]
     Active Substance: LEUCOVORIN
     Indication: ADENOCARCINOMA GASTRIC
     Route: 042
     Dates: start: 20140528
  4. PREDNISOLONE SODIUM SUCCINATE [Concomitant]
     Active Substance: PREDNISOLONE SODIUM SUCCINATE
     Indication: PREMEDICATION
     Dosage: PRIOR TO CHEMOTHERAPY ON DAY 1 EVERY CYCLE (100 MG)
     Route: 042
     Dates: start: 20140528
  5. TORASEMIDE [Concomitant]
     Active Substance: TORSEMIDE
     Indication: OEDEMA PERIPHERAL
     Route: 048
     Dates: start: 20140603
  6. EMEND [Concomitant]
     Active Substance: APREPITANT
     Indication: PROPHYLAXIS OF NAUSEA AND VOMITING
     Dosage: 1)PROPHYLAXIS OF NAUSEA DAY 1 OF CHEMOTHERAPY (125 MG)
     Route: 048
     Dates: start: 20140528
  7. OXALIPLATIN. [Suspect]
     Active Substance: OXALIPLATIN
     Indication: ADENOCARCINOMA GASTRIC
     Route: 042
     Dates: start: 20140528
  8. PLACEBO [Suspect]
     Active Substance: UNSPECIFIED INGREDIENT
     Indication: ADENOCARCINOMA GASTRIC
     Route: 048
     Dates: start: 20140528
  9. PLACEBO [Suspect]
     Active Substance: UNSPECIFIED INGREDIENT
     Indication: ADENOCARCINOMA GASTRIC
     Route: 048
     Dates: start: 20140528
  10. PLACEBO [Suspect]
     Active Substance: UNSPECIFIED INGREDIENT
     Indication: ADENOCARCINOMA GASTRIC
     Route: 048
     Dates: start: 20140528
  11. ALLOPURINOL. [Concomitant]
     Active Substance: ALLOPURINOL
     Route: 048
  12. PLACEBO [Suspect]
     Active Substance: UNSPECIFIED INGREDIENT
     Indication: ADENOCARCINOMA GASTRIC
     Route: 048
     Dates: start: 20140528
  13. METOPROLOL [Concomitant]
     Active Substance: METOPROLOL
  14. ASPIRIN. [Concomitant]
     Active Substance: ASPIRIN
     Dosage: 100 MG
     Route: 048
  15. PLACEBO [Suspect]
     Active Substance: UNSPECIFIED INGREDIENT
     Indication: ADENOCARCINOMA GASTRIC
     Route: 048
     Dates: start: 20140528
  16. FENISTIL [Concomitant]
     Active Substance: DIMETHINDENE
     Indication: PREMEDICATION
     Dosage: PRIORTO CHEMOTHERAPY ON DAY 1 EVERY CYCLE (4 MG)
     Dates: start: 20140709
  17. PLACEBO [Suspect]
     Active Substance: UNSPECIFIED INGREDIENT
     Indication: ADENOCARCINOMA GASTRIC
     Route: 048
     Dates: start: 20140528
  18. SIMVAHEXAL [Concomitant]
     Active Substance: SIMVASTATIN
     Dosage: 20 MG
     Route: 048
  19. PANTOZOL [Concomitant]
     Active Substance: PANTOPRAZOLE SODIUM
     Route: 048
  20. RANITIC [Concomitant]
     Active Substance: RANITIDINE HYDROCHLORIDE
     Indication: PREMEDICATION
     Dosage: PRIOR TO CHEMOTHERAPY ON DAY 1 EVERY CYCLE (50 MG)
     Route: 042
     Dates: start: 20140528
  21. NEULASTA [Concomitant]
     Active Substance: PEGFILGRASTIM
     Indication: NEUTROPHIL COUNT DECREASED
     Route: 058
     Dates: start: 20140906, end: 20140906
  22. FLUOROURACIL. [Suspect]
     Active Substance: FLUOROURACIL
     Indication: ADENOCARCINOMA GASTRIC
     Route: 040
     Dates: start: 20140528
  23. FLUOROURACIL. [Suspect]
     Active Substance: FLUOROURACIL
     Indication: ADENOCARCINOMA GASTRIC
     Route: 042
     Dates: start: 20140611
  24. RAMIPRIL. [Concomitant]
     Active Substance: RAMIPRIL
     Indication: HYPERTENSION
     Dosage: 5 MG
     Route: 048
  25. NOVAMINSULFON [Concomitant]
     Active Substance: METAMIZOLE
     Indication: PAIN
     Route: 048
     Dates: start: 20140603
  26. METFORMIN [Concomitant]
     Active Substance: METFORMIN HYDROCHLORIDE
     Indication: DIABETES MELLITUS
     Route: 048
     Dates: start: 20140909

REACTIONS (1)
  - Bursitis [Recovered/Resolved]

NARRATIVE: CASE EVENT DATE: 20140917
